FAERS Safety Report 7976261-9 (Version None)
Quarter: 2011Q4

REPORT INFORMATION
  Report Type: 
  Country: None (occurrence: None)
  Receive Date: 20111213
  Receipt Date: 20111017
  Transmission Date: 20120403
  Serious: No
  Sender: FDA-Public Use
  Company Number: US-AMGEN-USASP2011053619

PATIENT
  Age: 9 Year
  Sex: Female

DRUGS (1)
  1. ENBREL [Suspect]
     Indication: JUVENILE ARTHRITIS
     Dosage: 50 MG, QWK
     Dates: start: 20110919

REACTIONS (5)
  - DISTURBANCE IN ATTENTION [None]
  - MOOD SWINGS [None]
  - DRY MOUTH [None]
  - FATIGUE [None]
  - PALLOR [None]
